FAERS Safety Report 7234537-7 (Version None)
Quarter: 2011Q1

REPORT INFORMATION
  Report Type: 
  Country: None (occurrence: None)
  Receive Date: 20110119
  Receipt Date: 20110106
  Transmission Date: 20110831
  Serious: Yes (Hospitalization)
  Sender: FDA-Public Use
  Company Number: DE-BAYER-2010-000211

PATIENT
  Sex: Female
  Weight: 54 kg

DRUGS (2)
  1. CONTRACEPTIVES NOS [Concomitant]
     Indication: CONTRACEPTION
  2. CIPRO [Suspect]
     Indication: CYSTITIS HAEMORRHAGIC
     Dosage: 250 MG, BID
     Route: 048
     Dates: start: 20101023, end: 20101028

REACTIONS (4)
  - CONFUSIONAL STATE [None]
  - LYMPHOCYTOSIS [None]
  - NIGHTMARE [None]
  - PSYCHOTIC DISORDER [None]
